FAERS Safety Report 7685116-9 (Version None)
Quarter: 2011Q3

REPORT INFORMATION
  Report Type: 
  Country: None (occurrence: None)
  Receive Date: 20110816
  Receipt Date: 20110805
  Transmission Date: 20111222
  Serious: Yes (Other)
  Sender: FDA-Public Use
  Company Number: IT-BRISTOL-MYERS SQUIBB COMPANY-15963721

PATIENT
  Age: 76 Year
  Sex: Male

DRUGS (4)
  1. COUMADIN [Suspect]
     Dosage: INTERRUPTED ON 01FEB11
     Route: 048
     Dates: start: 19931001
  2. DISSENTEN [Suspect]
     Indication: DIARRHOEA
     Route: 048
     Dates: start: 20110130, end: 20110201
  3. ALLOPURINOL [Suspect]
     Indication: HYPERURICAEMIA
     Route: 048
     Dates: start: 20110121, end: 20110202
  4. CORDARONE [Suspect]
     Indication: ATRIAL FIBRILLATION
     Route: 048
     Dates: start: 20110121, end: 20110202

REACTIONS (4)
  - HYPERURICAEMIA [None]
  - DIARRHOEA [None]
  - ATRIAL FIBRILLATION [None]
  - INTERNATIONAL NORMALISED RATIO INCREASED [None]
